FAERS Safety Report 25047191 (Version 1)
Quarter: 2025Q1

REPORT INFORMATION
  Report Type: Spontaneous
  Country: US (occurrence: US)
  Receive Date: 20250306
  Receipt Date: 20250306
  Transmission Date: 20250409
  Serious: No
  Sender: BAYER HEALTHCARE PHARMACEUTICALS INC.
  Company Number: US-BAYER-2025A028206

PATIENT
  Age: 59 Year
  Sex: Male

DRUGS (6)
  1. NUBEQA [Suspect]
     Active Substance: DAROLUTAMIDE
  2. ORGOVYX [Suspect]
     Active Substance: RELUGOLIX
     Indication: Neoplasm malignant
     Dosage: 360 MG, QD
     Route: 048
  3. ORGOVYX [Suspect]
     Active Substance: RELUGOLIX
     Indication: Neoplasm malignant
     Dosage: 120 MG, QD
     Route: 048
  4. AMLODIPINE [Concomitant]
     Active Substance: AMLODIPINE BESYLATE
  5. ATORVASTATIN CALCIUM [Concomitant]
     Active Substance: ATORVASTATIN CALCIUM
  6. METOPROLOL SUCCINATE [Concomitant]
     Active Substance: METOPROLOL SUCCINATE

REACTIONS (5)
  - Pain [Unknown]
  - Skin tightness [Unknown]
  - Dry skin [Unknown]
  - Impaired work ability [Unknown]
  - Insomnia [Unknown]
